FAERS Safety Report 14248988 (Version 1)
Quarter: 2017Q4

REPORT INFORMATION
  Report Type: Spontaneous
  Country: US (occurrence: US)
  Receive Date: 20171204
  Receipt Date: 20171204
  Transmission Date: 20180321
  Serious: No
  Sender: FDA-Public Use
  Company Number: US-MYLANLABS-2017M1073087

PATIENT
  Sex: Female

DRUGS (1)
  1. ELIMITE [Suspect]
     Active Substance: PERMETHRIN
     Indication: ACARODERMATITIS
     Route: 061
     Dates: start: 20171109

REACTIONS (2)
  - No adverse event [Unknown]
  - Wrong technique in product usage process [Not Recovered/Not Resolved]

NARRATIVE: CASE EVENT DATE: 20171109
